FAERS Safety Report 4480390-4 (Version None)
Quarter: 2004Q4

REPORT INFORMATION
  Report Type: 
  Country: None (occurrence: None)
  Receive Date: 20041018
  Receipt Date: 20040930
  Transmission Date: 20050328
  Serious: Yes (Other)
  Sender: FDA-Public Use
  Company Number: 2004IC000540

PATIENT
  Age: 70 Year
  Sex: Male

DRUGS (13)
  1. FLUOROURACIL [Suspect]
     Indication: COLORECTAL CANCER METASTATIC
     Dosage: 400 MG/M**2, INTRAVENOUS BOLUS : 3000 MG/M**2, INTRAVENOUS
     Route: 040
     Dates: end: 20000305
  2. FLUOROURACIL [Suspect]
     Indication: COLORECTAL CANCER METASTATIC
     Dosage: 400 MG/M**2, INTRAVENOUS BOLUS : 3000 MG/M**2, INTRAVENOUS
     Route: 040
     Dates: start: 19990928
  3. OXALIPLATIN (OXALIPLATIN) [Suspect]
     Indication: COLORECTAL CANCER METASTATIC
     Dosage: 85 MG/M**2, INTRAVENOUS
     Route: 042
  4. LEUCOVORIN CALCIUM [Suspect]
     Indication: COLORECTAL CANCER METASTATIC
     Dosage: 150 MG/M**2, INTRAVENOUS
     Route: 042
  5. MAGNESIUM OXIDE [Concomitant]
  6. SENOKOT [Concomitant]
  7. IMOVANE [Concomitant]
  8. MOBIC [Concomitant]
  9. DIBENYLINE [Concomitant]
  10. AMPICILLIN [Concomitant]
  11. CEPHADOL [Concomitant]
  12. VALIUM [Concomitant]
  13. METOCLOPRAMIDE [Concomitant]

REACTIONS (2)
  - NEUROTOXICITY [None]
  - PERIPHERAL SENSORY NEUROPATHY [None]
